FAERS Safety Report 4700712-6 (Version None)
Quarter: 2005Q2

REPORT INFORMATION
  Report Type: 
  Country: None (occurrence: None)
  Receive Date: 20050627
  Receipt Date: 20050609
  Transmission Date: 20051028
  Serious: Yes (Other)
  Sender: FDA-Public Use
  Company Number: 214654

PATIENT
  Age: 47 Year
  Sex: Female

DRUGS (11)
  1. RITUXAN [Suspect]
     Indication: NON-HODGKIN'S LYMPHOMA
     Dosage: 600 MG, INTRAVENOUS
     Route: 042
     Dates: start: 20050503, end: 20050504
  2. RITUXAN [Suspect]
     Indication: NON-HODGKIN'S LYMPHOMA
     Dosage: 600 MG, INTRAVENOUS
     Route: 042
     Dates: start: 20050524
  3. SALINE (SODIUM CHLORIDE) [Concomitant]
  4. POLARAMINE [Concomitant]
  5. CALONAL (ACETAMINOPHEN) [Concomitant]
  6. FAMOTIDINE [Concomitant]
  7. SELBEX  (TEPRENONE) [Concomitant]
  8. BIOFERMIN (LACTOBACILLUS ACIDOPHILUS) [Concomitant]
  9. URALYT-U (POTASSIUM SODIUM HYDROGEN CITRATE) [Concomitant]
  10. ALLOPURINOL [Concomitant]
  11. FERROMIA (SODIUM FERROUS CITRATE) [Concomitant]

REACTIONS (14)
  - ABDOMINAL PAIN UPPER [None]
  - ALANINE AMINOTRANSFERASE INCREASED [None]
  - ASPARTATE AMINOTRANSFERASE INCREASED [None]
  - BLOOD ALKALINE PHOSPHATASE INCREASED [None]
  - BLOOD LACTATE DEHYDROGENASE INCREASED [None]
  - CHILLS [None]
  - DISSEMINATED INTRAVASCULAR COAGULATION [None]
  - FATIGUE [None]
  - HEADACHE [None]
  - HEPATIC FUNCTION ABNORMAL [None]
  - LIVER DISORDER [None]
  - NAUSEA [None]
  - PROTHROMBIN TIME PROLONGED [None]
  - TUMOUR LYSIS SYNDROME [None]
